FAERS Safety Report 7672753 (Version 3)
Quarter: 2016Q3

REPORT INFORMATION
  Report Type: Report from Study
  Country: FR (occurrence: FR)
  Receive Date: 20101117
  Receipt Date: 20160714
  Transmission Date: 20161109
  Serious: Yes (Other)
  Sender: FDA-Public Use
  Company Number: FR-ROCHE-738667

PATIENT
  Age: 50 Year
  Sex: Female

DRUGS (3)
  1. PACLITAXEL. [Suspect]
     Active Substance: PACLITAXEL
     Indication: BREAST CANCER
     Dosage: TEMPORARILY INTERRUPTED?LAST DOSE: 25/OCT/2010
     Route: 065
     Dates: start: 20100628, end: 20101102
  2. BEVACIZUMAB [Suspect]
     Active Substance: BEVACIZUMAB
     Indication: BREAST CANCER
     Dosage: LAST DOSE PRIOR TO SAE: 25 OCTOBER 2010.
     Route: 065
  3. CAPECITABINE. [Suspect]
     Active Substance: CAPECITABINE
     Indication: BREAST CANCER
     Dosage: LAST DOSE PRIOR TO SAE: 29 OCTOBER 2010.
     Route: 065

REACTIONS (1)
  - Onycholysis [Recovered/Resolved]

NARRATIVE: CASE EVENT DATE: 20101102
